FAERS Safety Report 23162455 (Version 7)
Quarter: 2024Q1

REPORT INFORMATION
  Report Type: Report from Study
  Country: JP (occurrence: JP)
  Receive Date: 20231109
  Receipt Date: 20240320
  Transmission Date: 20240409
  Serious: Yes (Hospitalization, Other)
  Sender: FDA-Public Use
  Company Number: JP-ABBVIE-19K-087-2852166-00

PATIENT
  Age: 67 Year
  Sex: Male
  Weight: 61 kg

DRUGS (25)
  1. CARBIDOPA\LEVODOPA [Suspect]
     Active Substance: CARBIDOPA\LEVODOPA
     Indication: Parkinson^s disease
     Dosage: MD: 13.4 ML, CD: 2.8 ML/HR ? 16 HRS, ED: 1 ML/UNIT ? 0
     Route: 050
     Dates: start: 20190516, end: 20190517
  2. CARBIDOPA\LEVODOPA [Suspect]
     Active Substance: CARBIDOPA\LEVODOPA
     Route: 050
     Dates: start: 20190515, end: 20190515
  3. CARBIDOPA\LEVODOPA [Suspect]
     Active Substance: CARBIDOPA\LEVODOPA
     Dosage: MD: 13.4 ML, CD: 2.8 ML/HR ? 16 HRS, ED: 1 ML/UNIT ? 0
     Route: 050
     Dates: start: 20190522, end: 20200117
  4. CARBIDOPA\LEVODOPA [Suspect]
     Active Substance: CARBIDOPA\LEVODOPA
     Dosage: MD: 13.4 ML, CD: 2.2 ML/HR ? 16 HRS, ED: 1 ML/UNIT ? 0
     Route: 050
     Dates: start: 20200122
  5. CELLULASE\DIASTASE\LIPASE [Concomitant]
     Active Substance: CELLULASE\DIASTASE\LIPASE
     Indication: Product used for unknown indication
     Dosage: 1.5 GRAM
     Route: 048
  6. TRANEXAMIC ACID [Concomitant]
     Active Substance: TRANEXAMIC ACID
     Indication: Prophylaxis
     Dosage: FORM STRENGTH: 1 GRAM
     Route: 042
     Dates: start: 20190521, end: 20190521
  7. CAMOSTAT MESYLATE [Concomitant]
     Active Substance: CAMOSTAT MESYLATE
     Indication: Product used for unknown indication
     Dosage: FORM STRENGTH: 100 MG
     Route: 048
  8. Carbazochrome sodium sulfonate and sodium chloride [Concomitant]
     Indication: Prophylaxis
     Dosage: FORM STRENGTH: 20 MG
     Route: 042
     Dates: start: 20190521, end: 20190521
  9. LOXOPROFEN SODIUM [Concomitant]
     Active Substance: LOXOPROFEN SODIUM
     Indication: Prophylaxis
     Dosage: FORM STRENGTH: 60 MG
     Route: 048
     Dates: start: 20190521, end: 20190523
  10. MIDAZOLAM [Concomitant]
     Active Substance: MIDAZOLAM
     Indication: Prophylaxis
     Dosage: 20 MILLIGRAM
     Route: 042
     Dates: start: 20190521, end: 20190521
  11. MIDAZOLAM [Concomitant]
     Active Substance: MIDAZOLAM
     Indication: Prophylaxis
     Dosage: 10 MILLIGRAM
     Route: 042
     Dates: start: 20190604, end: 20190604
  12. CARBIDOPA, LEVODOPA AND ENTACAPONE [Concomitant]
     Active Substance: CARBIDOPA\ENTACAPONE\LEVODOPA
     Indication: Parkinson^s disease
     Dosage: 400 MILLIGRAM
     Route: 048
     Dates: start: 20190517, end: 20190521
  13. CARBIDOPA, LEVODOPA AND ENTACAPONE [Concomitant]
     Active Substance: CARBIDOPA\ENTACAPONE\LEVODOPA
     Indication: Parkinson^s disease
     Dosage: 100 MILLIGRAM
     Route: 048
     Dates: start: 20190518, end: 20190521
  14. ESOMEPRAZOLE [Concomitant]
     Active Substance: ESOMEPRAZOLE
     Indication: Product used for unknown indication
     Dosage: FORM STRENGTH: 20 MILLIGRAM?HYDRATE
     Route: 048
  15. ROPINIROLE [Concomitant]
     Active Substance: ROPINIROLE
     Indication: Parkinson^s disease
     Dosage: 16 MILLIGRAM?FORM STRENGTH: 8 MG
     Route: 048
     Dates: end: 20190521
  16. LIMAPROST [Concomitant]
     Active Substance: LIMAPROST
     Indication: Product used for unknown indication
     Dosage: FORM STRENGTH: 5 MCG, 15 MICROGRAM
     Route: 048
  17. CEFOPERAZONE SODIUM\SULBACTAM SODIUM [Concomitant]
     Active Substance: CEFOPERAZONE SODIUM\SULBACTAM SODIUM
     Indication: Prophylaxis
     Dosage: 2 GRAM?FORM STRENGTH: 1 GM
     Route: 042
     Dates: start: 20190521, end: 20190521
  18. PREGABALIN [Concomitant]
     Active Substance: PREGABALIN
     Indication: Product used for unknown indication
     Dosage: 300 MILLIGRAM
     Route: 048
  19. SPACAL [Concomitant]
     Indication: Product used for unknown indication
     Dosage: 120 MILLIGRAM?FORM STRENGTH: 40 MG
     Route: 048
  20. ESZOPICLONE [Concomitant]
     Active Substance: ESZOPICLONE
     Indication: Product used for unknown indication
     Dosage: FORM STRENGTH: 2 MG?FREQUENCY TEXT: PRN
     Route: 048
     Dates: start: 20190529
  21. FLOPROPIONE SHOWA [Concomitant]
     Indication: Product used for unknown indication
     Dosage: FORM STRENGTH: 40 MG
     Route: 048
  22. Zonisamide ex [Concomitant]
     Indication: Parkinson^s disease
     Dosage: FORM STRENGTH: 50 MG
     Route: 048
  23. METHYLCOBALAMIN [Concomitant]
     Active Substance: METHYLCOBALAMIN
     Indication: Product used for unknown indication
     Dosage: 1500 MICROGRAM??FORM STRENGTH: 500 MCG
     Route: 048
  24. ZOLPIDEM TARTRATE [Concomitant]
     Active Substance: ZOLPIDEM TARTRATE
     Indication: Product used for unknown indication
     Dosage: FREQUENCY TEXT: PRN
     Route: 048
     Dates: end: 20190528
  25. SENNOSIDES [Concomitant]
     Active Substance: SENNOSIDES
     Indication: Product used for unknown indication
     Dosage: FREQUENCY TEXT: PRN
     Route: 048

REACTIONS (17)
  - Ileus [Recovered/Resolved]
  - Stoma site hypergranulation [Unknown]
  - Medical device site pain [Unknown]
  - Feeling cold [Unknown]
  - Mobility decreased [Unknown]
  - Stoma site irritation [Unknown]
  - Dyspnoea [Unknown]
  - Tremor [Unknown]
  - Weight decreased [Unknown]
  - Dyskinesia [Unknown]
  - Stoma site extravasation [Unknown]
  - Stoma site pain [Recovered/Resolved]
  - Stoma site pain [Unknown]
  - Device issue [Recovered/Resolved]
  - Tremor [Unknown]
  - Tinea pedis [Not Recovered/Not Resolved]
  - Intentional medical device removal by patient [Recovered/Resolved]

NARRATIVE: CASE EVENT DATE: 20190101
